FAERS Safety Report 17774447 (Version 1)
Quarter: 2020Q2

REPORT INFORMATION
  Report Type: Spontaneous
  Country: US (occurrence: US)
  Receive Date: 20200512
  Receipt Date: 20200512
  Transmission Date: 20200714
  Serious: No
  Sender: FDA-Public Use
  Company Number: None

PATIENT
  Age: 59 Year
  Sex: Male

DRUGS (3)
  1. INLYTA [Suspect]
     Active Substance: AXITINIB
     Indication: RENAL CANCER
     Dosage: ?          OTHER DOSE:1 TAB;?
     Route: 048
     Dates: start: 20190629
  2. SYNTHROID [Concomitant]
     Active Substance: LEVOTHYROXINE SODIUM
  3. XARELTO [Concomitant]
     Active Substance: RIVAROXABAN

REACTIONS (1)
  - Knee arthroplasty [None]

NARRATIVE: CASE EVENT DATE: 20200505
